FAERS Safety Report 6199672-3 (Version None)
Quarter: 2009Q2

REPORT INFORMATION
  Report Type: 
  Country: None (occurrence: None)
  Receive Date: 20090520
  Receipt Date: 20090520
  Transmission Date: 20091009
  Serious: Yes (Life-Threatening, Hospitalization, Other)
  Sender: FDA-Public Use
  Company Number: None

PATIENT
  Sex: Female
  Weight: 48.0813 kg

DRUGS (2)
  1. DIGOXIN TAB [Suspect]
     Indication: HEART RATE INCREASED
     Dosage: 1 TAB DAILY
     Dates: start: 20050101, end: 20081226
  2. DIGOXIN TAB [Suspect]
     Indication: INFLAMMATION
     Dosage: 1 TAB DAILY
     Dates: start: 20050101, end: 20081226

REACTIONS (8)
  - ANOREXIA [None]
  - DIARRHOEA [None]
  - DIZZINESS [None]
  - JUDGEMENT IMPAIRED [None]
  - MOOD SWINGS [None]
  - NAUSEA [None]
  - VISUAL IMPAIRMENT [None]
  - WEIGHT DECREASED [None]
